FAERS Safety Report 16422258 (Version 1)
Quarter: 2019Q2

REPORT INFORMATION
  Report Type: Spontaneous
  Country: US (occurrence: US)
  Receive Date: 20190612
  Receipt Date: 20190612
  Transmission Date: 20190711
  Serious: No
  Sender: FDA-Public Use
  Company Number: US-PERRIGO-18US009525

PATIENT
  Age: 75 Year
  Sex: Female
  Weight: 87.08 kg

DRUGS (1)
  1. MINOXIDIL. [Suspect]
     Active Substance: MINOXIDIL
     Indication: ALOPECIA
     Dosage: A HANDFUL, SINGLE
     Route: 061
     Dates: start: 20180911, end: 20180911

REACTIONS (2)
  - Expired product administered [Recovered/Resolved]
  - Wrong technique in product usage process [Recovered/Resolved]

NARRATIVE: CASE EVENT DATE: 20180911
